FAERS Safety Report 18158890 (Version 3)
Quarter: 2020Q3

REPORT INFORMATION
  Report Type: Report from Study
  Country: US (occurrence: US)
  Receive Date: 20200817
  Receipt Date: 20200924
  Transmission Date: 20201103
  Serious: Yes (Hospitalization)
  Sender: FDA-Public Use
  Company Number: US-TEVA-2020-US-1814756

PATIENT
  Age: 71 Year
  Sex: Male
  Weight: 78.4 kg

DRUGS (26)
  1. 5?FLUOROURACIL [Suspect]
     Active Substance: FLUOROURACIL
     Dosage: Q2WEEKS
     Route: 040
     Dates: start: 20180827
  2. OXYCONTIN [Concomitant]
     Active Substance: OXYCODONE HYDROCHLORIDE
  3. SIMETHICONE (DIMETHICONE) [Concomitant]
     Active Substance: DIMETHICONE
  4. IRINOTECAN [Suspect]
     Active Substance: IRINOTECAN
     Indication: COLORECTAL CANCER METASTATIC
     Dosage: 180 MG, Q2WEEKS
     Route: 042
     Dates: start: 20180827
  5. BEVACIZUMAB. [Suspect]
     Active Substance: BEVACIZUMAB
     Indication: COLORECTAL CANCER METASTATIC
     Dosage: 4485 MG, Q2WEEKS
     Route: 042
     Dates: start: 20180827
  6. SYNTHROID [Concomitant]
     Active Substance: LEVOTHYROXINE SODIUM
     Dates: start: 20180823
  7. BEVACIZUMAB. [Suspect]
     Active Substance: BEVACIZUMAB
     Dosage: 400 MILLIGRAM Q2 WEEKS
     Route: 042
     Dates: start: 20180827
  8. DEXAMETHASONE. [Concomitant]
     Active Substance: DEXAMETHASONE
  9. BACLOFEN. [Concomitant]
     Active Substance: BACLOFEN
  10. LIDODERM [Concomitant]
     Active Substance: LIDOCAINE
  11. GABAPENTIN. [Concomitant]
     Active Substance: GABAPENTIN
     Dates: start: 20180823
  12. HEPARIN FLUSH [Concomitant]
     Active Substance: HEPARIN SODIUM
  13. LOPERAMIDE [Concomitant]
     Active Substance: LOPERAMIDE
  14. DILAUDID [Concomitant]
     Active Substance: HYDROMORPHONE HYDROCHLORIDE
  15. CAPECITABINE. [Concomitant]
     Active Substance: CAPECITABINE
  16. 5?FLUOROURACIL [Suspect]
     Active Substance: FLUOROURACIL
     Indication: COLORECTAL CANCER METASTATIC
     Dosage: Q2WEEKS
     Route: 040
     Dates: start: 20180827
  17. LEUCOVORIN. [Suspect]
     Active Substance: LEUCOVORIN
     Indication: COLORECTAL CANCER METASTATIC
     Dosage: 400 MG, Q2WEEKS
     Route: 042
     Dates: start: 20180827
  18. DRONABINOL. [Concomitant]
     Active Substance: DRONABINOL
  19. PANTOPRAZOLE [Concomitant]
     Active Substance: PANTOPRAZOLE
  20. COLACE [Concomitant]
     Active Substance: DOCUSATE SODIUM
  21. BBI608 [Suspect]
     Active Substance: NAPABUCASIN
     Indication: COLORECTAL CANCER METASTATIC
     Dosage: 480 MILLIGRAM DAILY;
     Route: 048
     Dates: start: 20180822, end: 20180831
  22. DIPHENOXYLATE/ATROPINE [Concomitant]
     Active Substance: ATROPINE\DIPHENOXYLATE
  23. CARAFATE [Concomitant]
     Active Substance: SUCRALFATE
  24. LACTULOSE. [Concomitant]
     Active Substance: LACTULOSE
  25. ZOFRAN [Concomitant]
     Active Substance: ONDANSETRON HYDROCHLORIDE
  26. MS CONTIN [Concomitant]
     Active Substance: MORPHINE SULFATE

REACTIONS (1)
  - Metastases to abdominal cavity [Recovered/Resolved]

NARRATIVE: CASE EVENT DATE: 20181012
